FAERS Safety Report 9286694 (Version 1)
Quarter: 2013Q2

REPORT INFORMATION
  Report Type: Report from Study
  Country: GB (occurrence: GB)
  Receive Date: 20130513
  Receipt Date: 20130513
  Transmission Date: 20140414
  Serious: Yes (Death, Life-Threatening, Other)
  Sender: FDA-Public Use
  Company Number: GB-GENZYME-CAMP-1002919

PATIENT
  Age: 72 Year
  Sex: Male
  Weight: 61 kg

DRUGS (13)
  1. CAMPATH [Suspect]
     Indication: CHRONIC LYMPHOCYTIC LEUKAEMIA RECURRENT
     Dosage: 3 MG, UNK (WEEK 1)
     Route: 065
     Dates: start: 20130311
  2. CAMPATH [Suspect]
     Dosage: 10 MG, UNK (WEEK 1)
     Route: 065
  3. CAMPATH [Suspect]
     Dosage: 30 MG, UNK (WEEK 1)
     Route: 065
  4. CAMPATH [Suspect]
     Dosage: 30 MG, 3X/W (WEEK 2)
     Route: 065
     Dates: end: 20130322
  5. GLICLAZIDE [Concomitant]
     Indication: DIABETES MELLITUS
     Dosage: 40 MG, BID
     Route: 065
  6. METFORMIN [Concomitant]
     Indication: DIABETES MELLITUS
     Dosage: 500 MG, BID
     Route: 065
  7. SIMVASTATIN [Concomitant]
     Indication: BLOOD CHOLESTEROL INCREASED
     Dosage: 40 MG, QD
     Route: 065
  8. BUDESONIDE [Concomitant]
     Indication: ASTHMA
     Dosage: 100 MCG, BID
     Route: 065
  9. SALBUTAMOL [Concomitant]
     Indication: ASTHMA
     Dosage: 100 MCG, PRN
     Route: 065
  10. SEPTRIN [Concomitant]
     Indication: ANTIFUNGAL PROPHYLAXIS
     Dosage: 960 MG, 3X/W (MON, WED, FRI)
     Route: 065
     Dates: start: 20130311
  11. FLUCONAZOLE [Concomitant]
     Indication: PROPHYLAXIS
     Dosage: 100 MG, QD
     Route: 065
     Dates: start: 20130311
  12. ACICLOVIR [Concomitant]
     Indication: PROPHYLAXIS
     Dosage: 400 MG, BID
     Route: 065
     Dates: start: 20130311
  13. ALLOPURINOL [Concomitant]
     Indication: PROPHYLAXIS
     Dosage: 100 MG, QD
     Route: 065
     Dates: start: 20130311, end: 20130318

REACTIONS (4)
  - Multi-organ failure [Fatal]
  - Pseudomonal sepsis [Fatal]
  - Neutropenia [Fatal]
  - Platelet count decreased [Fatal]
